FAERS Safety Report 9686203 (Version 2)
Quarter: 2013Q4

REPORT INFORMATION
  Report Type: Spontaneous
  Country: US (occurrence: US)
  Receive Date: 20131113
  Receipt Date: 20131113
  Transmission Date: 20140711
  Serious: No
  Sender: FDA-Public Use
  Company Number: US-CUBIST PHARMACEUTICAL, INC.-2012CBST000089

PATIENT
  Sex: 0

DRUGS (5)
  1. CUBICIN [Suspect]
     Indication: STAPHYLOCOCCAL INFECTION
     Dosage: 310 MG, QD
     Route: 042
     Dates: start: 20121107, end: 20121221
  2. VISTARIL                           /00058403/ [Concomitant]
     Indication: ANXIETY
     Dosage: 50 MG, BID
     Route: 048
  3. TEGRETOL [Concomitant]
     Indication: PRODUCT USED FOR UNKNOWN INDICATION
     Dosage: 200 MG, BID
     Route: 048
  4. PHENERGAN                          /00033001/ [Concomitant]
     Indication: NAUSEA
     Dosage: 25 MG, Q6H
     Route: 054
  5. PHENERGAN                          /00033001/ [Concomitant]
     Indication: VOMITING

REACTIONS (1)
  - Infusion site extravasation [Recovered/Resolved]
